FAERS Safety Report 9864358 (Version 1)
Quarter: 2014Q1

REPORT INFORMATION
  Report Type: Spontaneous
  Country: US (occurrence: US)
  Receive Date: 20140203
  Receipt Date: 20140203
  Transmission Date: 20141002
  Serious: Yes (Hospitalization)
  Sender: FDA-Public Use
  Company Number: US-BAXTER-2014BAX004346

PATIENT
  Age: 3 Year
  Sex: Female

DRUGS (4)
  1. GAMMAGARD LIQUID [Suspect]
     Indication: IMMUNE THROMBOCYTOPENIC PURPURA
     Dosage: 1G/KG
     Route: 042
  2. GAMMAGARD LIQUID [Suspect]
     Route: 042
  3. METHYLPREDNISOLONE [Suspect]
     Indication: IMMUNE THROMBOCYTOPENIC PURPURA
     Route: 042
  4. DIPHENHYDRAMINE [Concomitant]
     Indication: PREMEDICATION

REACTIONS (4)
  - Haemorrhage intracranial [Recovered/Resolved]
  - Cerebral infarction [Recovered/Resolved]
  - Convulsion [Recovered/Resolved]
  - Encephalopathy [Recovered/Resolved]
